FAERS Safety Report 12949658 (Version 1)
Quarter: 2016Q4

REPORT INFORMATION
  Report Type: Spontaneous
  Country: IT (occurrence: IT)
  Receive Date: 20161116
  Receipt Date: 20161116
  Transmission Date: 20170207
  Serious: Yes (Other)
  Sender: FDA-Public Use
  Company Number: IT-SA-2016SA207646

PATIENT
  Age: 71 Year
  Sex: Male
  Weight: 65 kg

DRUGS (3)
  1. OXALIPLATIN. [Suspect]
     Active Substance: OXALIPLATIN
     Indication: COLON CANCER
     Route: 042
     Dates: start: 20161013, end: 20161013
  2. OXALIPLATIN. [Suspect]
     Active Substance: OXALIPLATIN
     Indication: COLON CANCER
     Route: 042
     Dates: start: 20160623, end: 20160623
  3. XELODA [Concomitant]
     Active Substance: CAPECITABINE
     Route: 048

REACTIONS (2)
  - Nausea [Not Recovered/Not Resolved]
  - Paraesthesia [Not Recovered/Not Resolved]

NARRATIVE: CASE EVENT DATE: 20161014
